FAERS Safety Report 14328349 (Version 1)
Quarter: 2017Q4

REPORT INFORMATION
  Report Type: Spontaneous
  Country: PR (occurrence: PR)
  Receive Date: 20171227
  Receipt Date: 20171227
  Transmission Date: 20180321
  Serious: No
  Sender: FDA-Public Use
  Company Number: None

PATIENT
  Age: 64 Year
  Sex: Female
  Weight: 94.5 kg

DRUGS (1)
  1. CEFTRIAXONE. [Suspect]
     Active Substance: CEFTRIAXONE
     Indication: SEPSIS
     Route: 042
     Dates: start: 20171219, end: 20171221

REACTIONS (5)
  - Rash [None]
  - Erythema [None]
  - Pruritus [None]
  - Tongue disorder [None]
  - Discomfort [None]

NARRATIVE: CASE EVENT DATE: 20171221
